FAERS Safety Report 19520821 (Version 2)
Quarter: 2021Q3

REPORT INFORMATION
  Report Type: Report from Study
  Country: US (occurrence: US)
  Receive Date: 20210712
  Receipt Date: 20210811
  Transmission Date: 20211014
  Serious: Yes (Hospitalization, Other)
  Sender: FDA-Public Use
  Company Number: US-TAKEDA-2021TUS035147

PATIENT
  Age: 62 Year
  Sex: Male

DRUGS (2)
  1. MESALAZINE [Suspect]
     Active Substance: MESALAMINE
     Indication: PRODUCT USED FOR UNKNOWN INDICATION
     Dosage: UNK
     Route: 065
  2. VEDOLIZUMAB [Suspect]
     Active Substance: VEDOLIZUMAB
     Indication: CROHN^S DISEASE
     Dosage: 300 MILLIGRAM, SINGLE
     Route: 042
     Dates: start: 20210423

REACTIONS (10)
  - Muscle rupture [Recovering/Resolving]
  - Abdominal pain upper [Recovering/Resolving]
  - Headache [Recovered/Resolved]
  - Fall [Recovering/Resolving]
  - Nausea [Unknown]
  - Tendon rupture [Recovering/Resolving]
  - Joint dislocation [Recovering/Resolving]
  - Illness [Unknown]
  - Pain in extremity [Not Recovered/Not Resolved]
  - Fatigue [Recovered/Resolved]

NARRATIVE: CASE EVENT DATE: 20210606
